FAERS Safety Report 8485899 (Version 2)
Quarter: 2013Q2

REPORT INFORMATION
  Report Type: Spontaneous
  Country: US (occurrence: US)
  Receive Date: 20120330
  Receipt Date: 20130426
  Transmission Date: 20140414
  Serious: Yes (Other)
  Sender: FDA-Public Use
  Company Number: US-ASTRAZENECA-2010SE46562

PATIENT
  Age: 47 Year
  Sex: Female

DRUGS (3)
  1. ZOMIG [Suspect]
     Indication: MIGRAINE
     Route: 048
  2. ZOMIG [Suspect]
     Indication: MIGRAINE
     Route: 048
  3. ALLEGRA [Concomitant]

REACTIONS (10)
  - Suicidal ideation [Unknown]
  - Pruritus [Unknown]
  - Depression [Unknown]
  - Fatigue [Unknown]
  - Migraine [Unknown]
  - Cardiovascular disorder [Unknown]
  - Malaise [Unknown]
  - Hypersensitivity [Unknown]
  - Intentional drug misuse [Unknown]
  - Drug dose omission [Unknown]
